FAERS Safety Report 20819235 (Version 2)
Quarter: 2022Q3

REPORT INFORMATION
  Report Type: Report from Study
  Country: CA (occurrence: CA)
  Receive Date: 20220512
  Receipt Date: 20220810
  Transmission Date: 20221027
  Serious: Yes (Other)
  Sender: FDA-Public Use
  Company Number: CA-BAYER-2022A065279

PATIENT
  Age: 33 Year
  Sex: Female

DRUGS (1)
  1. EYLEA [Suspect]
     Active Substance: AFLIBERCEPT
     Indication: Diabetic retinal oedema
     Dosage: UNK, LEFT EYE, SOLUTION FOR INJECTION
     Dates: start: 20220425

REACTIONS (1)
  - Retinopexy [Unknown]

NARRATIVE: CASE EVENT DATE: 20220502
